FAERS Safety Report 18841429 (Version 3)
Quarter: 2021Q3

REPORT INFORMATION
  Report Type: Report from Study
  Country: US (occurrence: US)
  Receive Date: 20210203
  Receipt Date: 20210824
  Transmission Date: 20211014
  Serious: Yes (Other)
  Sender: FDA-Public Use
  Company Number: US-TAKEDA-US201942808

PATIENT
  Sex: Female

DRUGS (1)
  1. CUVITRU [Suspect]
     Active Substance: HUMAN IMMUNOGLOBULIN G
     Indication: PRIMARY IMMUNODEFICIENCY SYNDROME
     Dosage: UNK UNK, Q2WEEKS
     Route: 058

REACTIONS (10)
  - Incorrect dose administered [Unknown]
  - COVID-19 [Unknown]
  - Wrong technique in device usage process [Unknown]
  - Influenza [Unknown]
  - Infusion site mass [Not Recovered/Not Resolved]
  - Infusion site haemorrhage [Unknown]
  - Impaired gastric emptying [Unknown]
  - Malaise [Unknown]
  - Autoimmune disorder [Unknown]
  - Inappropriate schedule of product administration [Unknown]
